FAERS Safety Report 4538480-3 (Version None)
Quarter: 2004Q4

REPORT INFORMATION
  Report Type: 
  Country: None (occurrence: None)
  Receive Date: 20041227
  Receipt Date: 20041216
  Transmission Date: 20050328
  Serious: Yes (Death)
  Sender: FDA-Public Use
  Company Number: US-JNJFOC-20030802414

PATIENT
  Sex: Male

DRUGS (1)
  1. REMINYL [Suspect]
     Route: 049

REACTIONS (1)
  - HAEMORRHAGIC STROKE [None]
